FAERS Safety Report 4597992-7 (Version None)
Quarter: 2005Q1

REPORT INFORMATION
  Report Type: 
  Country: None (occurrence: None)
  Receive Date: 20050208
  Receipt Date: 20040804
  Transmission Date: 20050727
  Serious: Yes (Hospitalization)
  Sender: FDA-Public Use
  Company Number: 04USA0195

PATIENT
  Sex: Male

DRUGS (2)
  1. GLIADEL [Suspect]
     Indication: GLIOBLASTOMA MULTIFORME
     Dosage: NR
  2. STEROID ANTIBACTERIALS [Concomitant]

REACTIONS (2)
  - BRAIN ABSCESS [None]
  - PROPIONIBACTERIUM INFECTION [None]
